FAERS Safety Report 25974599 (Version 1)
Quarter: 2025Q4

REPORT INFORMATION
  Report Type: Spontaneous
  Country: US (occurrence: US)
  Receive Date: 20251029
  Receipt Date: 20251029
  Transmission Date: 20260117
  Serious: Yes (Other)
  Sender: CHEPLAPHARM
  Company Number: US-CHEPLA-2025012324

PATIENT
  Age: 79 Year
  Sex: Male

DRUGS (1)
  1. QUETIAPINE [Suspect]
     Active Substance: QUETIAPINE
     Dosage: DAILY DOSE: 400 MILLIGRAM
     Route: 048
     Dates: start: 20150201, end: 20220531

REACTIONS (7)
  - Erectile dysfunction [Not Recovered/Not Resolved]
  - Dizziness [Recovering/Resolving]
  - Confusional state [Recovering/Resolving]
  - Gastrointestinal disorder [Recovering/Resolving]
  - Visual impairment [Recovering/Resolving]
  - Anaemia [Recovering/Resolving]
  - Quality of life decreased [Recovering/Resolving]
